FAERS Safety Report 5336037-8 (Version None)
Quarter: 2007Q1

REPORT INFORMATION
  Report Type: 
  Country: None (occurrence: None)
  Receive Date: 20070302
  Receipt Date: 20070104
  Transmission Date: 20070707
  Serious: No
  Sender: FDA-Public Use
  Company Number: 2007MP000010

PATIENT
  Age: 60 Year
  Sex: Female
  Weight: 60 kg

DRUGS (6)
  1. DACOGEN [Suspect]
     Indication: MYELODYSPLASTIC SYNDROME
     Dosage: QD; IV
     Route: 042
     Dates: start: 20070102, end: 20070104
  2. ACYCLOVIR [Concomitant]
  3. AMICAR [Concomitant]
  4. AUGMENTIN '125' [Concomitant]
  5. FLUCONAZOLE [Concomitant]
  6. DEXAMETHASONE 0.5MG TAB [Concomitant]

REACTIONS (3)
  - ALANINE AMINOTRANSFERASE INCREASED [None]
  - ASPARTATE AMINOTRANSFERASE INCREASED [None]
  - OFF LABEL USE [None]
